FAERS Safety Report 4325839-2 (Version None)
Quarter: 2004Q1

REPORT INFORMATION
  Report Type: 
  Country: None (occurrence: None)
  Receive Date: 20040329
  Receipt Date: 20040319
  Transmission Date: 20041129
  Serious: Yes (Hospitalization)
  Sender: FDA-Public Use
  Company Number: JP-ROCHE-362281

PATIENT
  Age: 28 Year
  Sex: Female

DRUGS (1)
  1. TAMIFLU [Suspect]
     Route: 048
     Dates: start: 20040225, end: 20040229

REACTIONS (2)
  - DEPRESSED LEVEL OF CONSCIOUSNESS [None]
  - PANCYTOPENIA [None]
